FAERS Safety Report 24994375 (Version 1)
Quarter: 2025Q1

REPORT INFORMATION
  Report Type: Spontaneous
  Country: US (occurrence: None)
  Receive Date: 20250220
  Receipt Date: 20250220
  Transmission Date: 20250408
  Serious: Yes (Hospitalization)
  Sender: FDA-CTU
  Company Number: None

PATIENT
  Age: 69 Year
  Sex: Male
  Weight: 99 kg

DRUGS (1)
  1. ATORVASTATIN CALCIUM [Suspect]
     Active Substance: ATORVASTATIN CALCIUM
     Indication: Hyperlipidaemia
     Dosage: FREQUENCY : DAILY;?
     Route: 048
     Dates: end: 20241023

REACTIONS (16)
  - Ascites [None]
  - Hepatic cirrhosis [None]
  - Splenomegaly [None]
  - Hepatorenal syndrome [None]
  - Confusional state [None]
  - Rhabdomyolysis [None]
  - Scrotal oedema [None]
  - Pleural effusion [None]
  - Hypervolaemia [None]
  - Haematochezia [None]
  - Acute kidney injury [None]
  - Ammonia increased [None]
  - Hepatic enzyme increased [None]
  - Blood creatinine increased [None]
  - Blood creatine phosphokinase increased [None]
  - Diarrhoea [None]

NARRATIVE: CASE EVENT DATE: 20241023
